FAERS Safety Report 6086232-8 (Version None)
Quarter: 2009Q1

REPORT INFORMATION
  Report Type: 
  Country: None (occurrence: None)
  Receive Date: 20090220
  Receipt Date: 20090210
  Transmission Date: 20090719
  Serious: Yes (Life-Threatening, Hospitalization)
  Sender: FDA-Public Use
  Company Number: US-JNJFOC-20090101191

PATIENT
  Sex: Female
  Weight: 55.5 kg

DRUGS (8)
  1. INFLIXIMAB [Suspect]
     Route: 042
  2. INFLIXIMAB [Suspect]
     Dosage: WEEK 6
     Route: 042
  3. INFLIXIMAB [Suspect]
     Dosage: WEEK 2
     Route: 042
  4. INFLIXIMAB [Suspect]
     Indication: COLITIS ULCERATIVE
     Dosage: WEEK 0
     Route: 042
  5. LANSOPRAZOLE [Concomitant]
     Indication: COLITIS ULCERATIVE
     Route: 048
  6. CALCIUM CARBONATE [Concomitant]
     Indication: COLITIS ULCERATIVE
     Route: 048
  7. FERROUS SULFATE TAB [Concomitant]
     Indication: COLITIS ULCERATIVE
     Route: 048
  8. SOLU-MEDROL [Concomitant]
     Indication: COLITIS ULCERATIVE
     Route: 042

REACTIONS (1)
  - LOBAR PNEUMONIA [None]
